FAERS Safety Report 19897434 (Version 1)
Quarter: 2021Q3

REPORT INFORMATION
  Report Type: Spontaneous
  Country: US (occurrence: US)
  Receive Date: 20210929
  Receipt Date: 20210929
  Transmission Date: 20211014
  Serious: No
  Sender: FDA-Public Use
  Company Number: US-OTSUKA-2021_002455

PATIENT
  Age: 48 Year
  Sex: Female
  Weight: 104.33 kg

DRUGS (5)
  1. ATENOLOL. [Concomitant]
     Active Substance: ATENOLOL
     Indication: BLOOD PRESSURE ABNORMAL
     Dosage: 12.5 MG, BID
     Route: 065
  2. PRAZOSIN. [Concomitant]
     Active Substance: PRAZOSIN
     Indication: POST-TRAUMATIC STRESS DISORDER
     Dosage: 2 MG, QD
     Route: 065
  3. DIAZEPAM. [Concomitant]
     Active Substance: DIAZEPAM
     Indication: PRODUCT USED FOR UNKNOWN INDICATION
     Dosage: 10 MG, TID
     Route: 065
  4. LOSARTAN. [Concomitant]
     Active Substance: LOSARTAN
     Indication: BLOOD PRESSURE ABNORMAL
     Dosage: 50 MG, BID
     Route: 065
  5. REXULTI [Suspect]
     Active Substance: BREXPIPRAZOLE
     Indication: BIPOLAR II DISORDER
     Dosage: 0.25 MG, UNK
     Route: 065
     Dates: start: 20210109, end: 20210122

REACTIONS (3)
  - Blood pressure increased [Not Recovered/Not Resolved]
  - Product use in unapproved indication [Unknown]
  - Underdose [Unknown]

NARRATIVE: CASE EVENT DATE: 20210109
